FAERS Safety Report 4503542-3 (Version None)
Quarter: 2004Q4

REPORT INFORMATION
  Report Type: 
  Country: None (occurrence: None)
  Receive Date: 20041112
  Receipt Date: 20041102
  Transmission Date: 20050328
  Serious: Yes (Hospitalization)
  Sender: FDA-Public Use
  Company Number: K200401689

PATIENT
  Age: 91 Year
  Sex: Female

DRUGS (10)
  1. ALTACE [Suspect]
     Indication: MYOCARDIAL INFARCTION
     Dosage: 1.25 MG, QD, ORAL
     Route: 048
     Dates: start: 20040201, end: 20040425
  2. DIGITOXIN TAB [Suspect]
     Indication: CARDIAC FAILURE
     Dosage: 0.07 MG, QD (MONDAY TO THURSDAY), ORAL
     Route: 048
     Dates: start: 20040201, end: 20040425
  3. SPIRONOLACTONE [Suspect]
     Indication: CARDIAC FAILURE
     Dosage: SEE IMAGE
     Route: 048
     Dates: start: 20040301, end: 20040423
  4. SPIRONOLACTONE [Suspect]
     Indication: CARDIAC FAILURE
     Dosage: SEE IMAGE
     Route: 048
     Dates: start: 20040426
  5. CITALOPRAM HYDROBROMIDE [Suspect]
     Indication: DEPRESSION
     Dosage: 20 MG, QD, ORAL
     Route: 048
     Dates: start: 20040301
  6. RANI  (RANITIDINE HYDROCHLORIDE) [Suspect]
     Indication: PROPHYLAXIS
     Dosage: 300 MG, QD, ORAL
     Route: 048
     Dates: start: 20040301, end: 20040425
  7. GLIBENCLAMID     ^COPHAR^ (GLIBENCLAMIDE) [Concomitant]
  8. ISCOVER     (CLOPIDOGREL SULFATE) [Concomitant]
  9. SORTIS            ^GOEDECKE^ (ATORVASTATIN CALCIUM) [Concomitant]
  10. TOREM          (TORASEMIDE) [Concomitant]

REACTIONS (17)
  - ACTIVATED PARTIAL THROMBOPLASTIN TIME PROLONGED [None]
  - ATRIAL FIBRILLATION [None]
  - BLOOD FIBRINOGEN INCREASED [None]
  - BLOOD PRESSURE DECREASED [None]
  - BRADYCARDIA [None]
  - BRONCHOPNEUMONIA [None]
  - CARDIOACTIVE DRUG LEVEL INCREASED [None]
  - DEHYDRATION [None]
  - DRUG INTERACTION [None]
  - HAEMATOCRIT DECREASED [None]
  - HAEMOGLOBIN DECREASED [None]
  - HYPERKALAEMIA [None]
  - INTERNATIONAL NORMALISED RATIO DECREASED [None]
  - NAUSEA [None]
  - PROTHROMBIN TIME PROLONGED [None]
  - RENAL FAILURE [None]
  - VOMITING [None]
